FAERS Safety Report 19990653 (Version 1)
Quarter: 2021Q4

REPORT INFORMATION
  Report Type: Spontaneous
  Country: US (occurrence: US)
  Receive Date: 20211025
  Receipt Date: 20211025
  Transmission Date: 20220303
  Serious: No
  Sender: FDA-Public Use
  Company Number: US-TEVA-2021-US-1966793

PATIENT
  Age: 58 Year
  Sex: Male

DRUGS (1)
  1. KETOCONAZOLE [Suspect]
     Active Substance: KETOCONAZOLE
     Route: 061
     Dates: start: 20211011

REACTIONS (2)
  - Visual field defect [Unknown]
  - Expired product administered [Unknown]

NARRATIVE: CASE EVENT DATE: 20211001
